FAERS Safety Report 7554028-3 (Version None)
Quarter: 2011Q2

REPORT INFORMATION
  Report Type: 
  Country: None (occurrence: None)
  Receive Date: 20110617
  Receipt Date: 20110607
  Transmission Date: 20111010
  Serious: Yes (Life-Threatening)
  Sender: FDA-Public Use
  Company Number: JP-SANOFI-AVENTIS-2011SA035800

PATIENT
  Age: 70 Year
  Sex: Male

DRUGS (2)
  1. EURAX H [Concomitant]
     Dates: start: 20110531
  2. ALLEGRA [Suspect]
     Indication: URTICARIA
     Route: 048
     Dates: start: 20110531, end: 20110531

REACTIONS (1)
  - ARRHYTHMIA [None]
